FAERS Safety Report 22093388 (Version 2)
Quarter: 2023Q1

REPORT INFORMATION
  Report Type: Spontaneous
  Country: JP (occurrence: JP)
  Receive Date: 20230314
  Receipt Date: 20230323
  Transmission Date: 20230418
  Serious: Yes (Other)
  Sender: FDA-Public Use
  Company Number: JP-BIOGEN-2023BI01191684

PATIENT
  Age: 48 Year
  Sex: Female

DRUGS (3)
  1. TYSABRI [Suspect]
     Active Substance: NATALIZUMAB
     Indication: Multiple sclerosis
     Dosage: EID
     Route: 050
     Dates: start: 20210216, end: 20210216
  2. TYSABRI [Suspect]
     Active Substance: NATALIZUMAB
     Dosage: EID
     Route: 050
     Dates: start: 20210417, end: 20210417
  3. TYSABRI [Suspect]
     Active Substance: NATALIZUMAB
     Dosage: EID
     Route: 050
     Dates: start: 20210526, end: 20210526

REACTIONS (2)
  - Progressive multifocal leukoencephalopathy [Unknown]
  - Multiple sclerosis relapse [Unknown]

NARRATIVE: CASE EVENT DATE: 20230101
